FAERS Safety Report 19242911 (Version 9)
Quarter: 2022Q3

REPORT INFORMATION
  Report Type: Report from Study
  Country: CA (occurrence: CA)
  Receive Date: 20210510
  Receipt Date: 20220927
  Transmission Date: 20221026
  Serious: Yes (Life-Threatening, Other)
  Sender: FDA-Public Use
  Company Number: CA-BAUSCH-BL-2021-015009

PATIENT
  Age: 65 Year
  Sex: Male

DRUGS (273)
  1. METFORMIN HYDROCHLORIDE [Suspect]
     Active Substance: METFORMIN HYDROCHLORIDE
     Indication: Product used for unknown indication
     Route: 065
  2. METFORMIN HYDROCHLORIDE [Suspect]
     Active Substance: METFORMIN HYDROCHLORIDE
     Route: 065
  3. METFORMIN HYDROCHLORIDE [Suspect]
     Active Substance: METFORMIN HYDROCHLORIDE
     Route: 065
  4. METFORMIN HYDROCHLORIDE [Suspect]
     Active Substance: METFORMIN HYDROCHLORIDE
     Route: 065
  5. METFORMIN HYDROCHLORIDE [Suspect]
     Active Substance: METFORMIN HYDROCHLORIDE
     Route: 065
  6. METFORMIN HYDROCHLORIDE [Suspect]
     Active Substance: METFORMIN HYDROCHLORIDE
     Route: 065
  7. METFORMIN HYDROCHLORIDE [Suspect]
     Active Substance: METFORMIN HYDROCHLORIDE
     Route: 065
  8. METFORMIN HYDROCHLORIDE [Suspect]
     Active Substance: METFORMIN HYDROCHLORIDE
     Route: 065
  9. METFORMIN HYDROCHLORIDE [Suspect]
     Active Substance: METFORMIN HYDROCHLORIDE
     Route: 065
  10. METFORMIN HYDROCHLORIDE [Suspect]
     Active Substance: METFORMIN HYDROCHLORIDE
     Route: 065
  11. METFORMIN HYDROCHLORIDE [Suspect]
     Active Substance: METFORMIN HYDROCHLORIDE
     Route: 065
  12. METFORMIN HYDROCHLORIDE [Suspect]
     Active Substance: METFORMIN HYDROCHLORIDE
     Route: 065
  13. ALBUTEROL SULFATE [Suspect]
     Active Substance: ALBUTEROL SULFATE
     Indication: Eosinophilic granulomatosis with polyangiitis
     Route: 065
  14. ALBUTEROL [Suspect]
     Active Substance: ALBUTEROL
     Indication: Eosinophilic granulomatosis with polyangiitis
     Dosage: METERED DOSE (AEROSOL)
     Route: 065
  15. ALBUTEROL [Suspect]
     Active Substance: ALBUTEROL
     Dosage: METERED DOSE (AEROSOL)
     Route: 065
  16. METFORMIN [Suspect]
     Active Substance: METFORMIN HYDROCHLORIDE
     Indication: Product used for unknown indication
     Route: 065
  17. METFORMIN [Suspect]
     Active Substance: METFORMIN HYDROCHLORIDE
     Route: 065
  18. ALBUTEROL [Suspect]
     Active Substance: ALBUTEROL
     Indication: Eosinophilic granulomatosis with polyangiitis
     Route: 065
  19. ALBUTEROL [Suspect]
     Active Substance: ALBUTEROL
     Indication: Product used for unknown indication
  20. ALBUTEROL [Suspect]
     Active Substance: ALBUTEROL
     Indication: Eosinophilic granulomatosis with polyangiitis
     Route: 065
  21. BUDESONIDE [Suspect]
     Active Substance: BUDESONIDE
     Indication: Product used for unknown indication
     Route: 065
  22. ALENDRONATE SODIUM [Suspect]
     Active Substance: ALENDRONATE SODIUM
     Indication: Product used for unknown indication
     Route: 065
  23. ALENDRONATE SODIUM [Suspect]
     Active Substance: ALENDRONATE SODIUM
     Route: 065
  24. ALENDRONATE SODIUM [Suspect]
     Active Substance: ALENDRONATE SODIUM
     Route: 065
  25. ALENDRONATE SODIUM [Suspect]
     Active Substance: ALENDRONATE SODIUM
     Dosage: CYCLICAL
     Route: 065
  26. ALENDRONATE SODIUM [Suspect]
     Active Substance: ALENDRONATE SODIUM
     Route: 065
  27. ALENDRONATE SODIUM [Suspect]
     Active Substance: ALENDRONATE SODIUM
     Route: 065
  28. ALENDRONATE SODIUM [Suspect]
     Active Substance: ALENDRONATE SODIUM
     Dosage: CYCLICAL
     Route: 065
  29. ALENDRONATE SODIUM [Suspect]
     Active Substance: ALENDRONATE SODIUM
     Dosage: CYCLICAL
     Route: 065
  30. AZATHIOPRINE [Suspect]
     Active Substance: AZATHIOPRINE
     Indication: Product used for unknown indication
     Route: 065
  31. AZATHIOPRINE [Suspect]
     Active Substance: AZATHIOPRINE
     Route: 065
  32. AZATHIOPRINE [Suspect]
     Active Substance: AZATHIOPRINE
     Route: 065
  33. AZATHIOPRINE [Suspect]
     Active Substance: AZATHIOPRINE
     Route: 065
  34. AZATHIOPRINE [Suspect]
     Active Substance: AZATHIOPRINE
     Route: 048
  35. AZATHIOPRINE [Suspect]
     Active Substance: AZATHIOPRINE
     Route: 065
  36. AZATHIOPRINE [Suspect]
     Active Substance: AZATHIOPRINE
     Route: 065
  37. AZATHIOPRINE [Suspect]
     Active Substance: AZATHIOPRINE
     Route: 065
  38. AZATHIOPRINE [Suspect]
     Active Substance: AZATHIOPRINE
     Route: 048
  39. AZATHIOPRINE [Suspect]
     Active Substance: AZATHIOPRINE
     Route: 065
  40. AZATHIOPRINE [Suspect]
     Active Substance: AZATHIOPRINE
     Route: 065
  41. AZATHIOPRINE [Suspect]
     Active Substance: AZATHIOPRINE
     Route: 065
  42. AZATHIOPRINE [Suspect]
     Active Substance: AZATHIOPRINE
     Route: 065
  43. AZATHIOPRINE [Suspect]
     Active Substance: AZATHIOPRINE
     Route: 065
  44. AZATHIOPRINE [Suspect]
     Active Substance: AZATHIOPRINE
     Route: 065
  45. AZITHROMYCIN [Suspect]
     Active Substance: AZITHROMYCIN
     Indication: Product used for unknown indication
     Route: 065
  46. AZITHROMYCIN [Suspect]
     Active Substance: AZITHROMYCIN
     Route: 065
  47. AZITHROMYCIN [Suspect]
     Active Substance: AZITHROMYCIN
     Route: 065
  48. AZITHROMYCIN [Suspect]
     Active Substance: AZITHROMYCIN
     Route: 065
  49. AZITHROMYCIN [Suspect]
     Active Substance: AZITHROMYCIN
     Route: 065
  50. AZITHROMYCIN [Suspect]
     Active Substance: AZITHROMYCIN
     Route: 065
  51. AZITHROMYCIN [Suspect]
     Active Substance: AZITHROMYCIN
     Route: 065
  52. AZITHROMYCIN [Suspect]
     Active Substance: AZITHROMYCIN
     Route: 065
  53. AZITHROMYCIN [Suspect]
     Active Substance: AZITHROMYCIN
     Route: 065
  54. AZITHROMYCIN [Suspect]
     Active Substance: AZITHROMYCIN
     Route: 065
  55. AZITHROMYCIN [Suspect]
     Active Substance: AZITHROMYCIN
     Route: 065
  56. AZITHROMYCIN [Suspect]
     Active Substance: AZITHROMYCIN
     Route: 065
  57. BETAMETHASONE DIPROPIONATE [Suspect]
     Active Substance: BETAMETHASONE DIPROPIONATE
     Indication: Product used for unknown indication
     Route: 065
  58. CALCIUM CARBONATE [Suspect]
     Active Substance: CALCIUM CARBONATE
     Indication: Product used for unknown indication
     Route: 065
  59. CALCIUM CARBONATE [Suspect]
     Active Substance: CALCIUM CARBONATE
     Route: 065
  60. CALCIUM CARBONATE [Suspect]
     Active Substance: CALCIUM CARBONATE
     Route: 065
  61. CALCIUM CARBONATE [Suspect]
     Active Substance: CALCIUM CARBONATE
     Route: 065
  62. CALCIUM CARBONATE [Suspect]
     Active Substance: CALCIUM CARBONATE
     Route: 065
  63. CALCIUM CARBONATE [Suspect]
     Active Substance: CALCIUM CARBONATE
     Route: 065
  64. CANDESARTAN [Suspect]
     Active Substance: CANDESARTAN
     Indication: Product used for unknown indication
     Route: 065
  65. CANDESARTAN [Suspect]
     Active Substance: CANDESARTAN
     Route: 048
  66. CANDESARTAN [Suspect]
     Active Substance: CANDESARTAN
     Route: 065
  67. CANDESARTAN [Suspect]
     Active Substance: CANDESARTAN
     Route: 048
  68. CANDESARTAN [Suspect]
     Active Substance: CANDESARTAN
     Route: 065
  69. CANDESARTAN [Suspect]
     Active Substance: CANDESARTAN
     Route: 065
  70. CANDESARTAN [Suspect]
     Active Substance: CANDESARTAN
     Route: 065
  71. CEFUROXIME [Suspect]
     Active Substance: CEFUROXIME
     Indication: Product used for unknown indication
     Route: 065
  72. CEFUROXIME [Suspect]
     Active Substance: CEFUROXIME
     Route: 065
  73. CEFUROXIME [Suspect]
     Active Substance: CEFUROXIME
     Route: 065
  74. CEFUROXIME [Suspect]
     Active Substance: CEFUROXIME
     Route: 065
  75. CEFUROXIME [Suspect]
     Active Substance: CEFUROXIME
     Route: 065
  76. CEFUROXIME [Suspect]
     Active Substance: CEFUROXIME
     Route: 065
  77. DOMPERIDONE MALEATE [Suspect]
     Active Substance: DOMPERIDONE MALEATE
     Indication: Product used for unknown indication
     Route: 065
  78. DOMPERIDONE MALEATE [Suspect]
     Active Substance: DOMPERIDONE MALEATE
     Route: 065
  79. DOMPERIDONE MALEATE [Suspect]
     Active Substance: DOMPERIDONE MALEATE
     Route: 065
  80. DOMPERIDONE MALEATE [Suspect]
     Active Substance: DOMPERIDONE MALEATE
     Route: 065
  81. DOMPERIDONE MALEATE [Suspect]
     Active Substance: DOMPERIDONE MALEATE
     Route: 065
  82. DOMPERIDONE MALEATE [Suspect]
     Active Substance: DOMPERIDONE MALEATE
     Route: 065
  83. DOMPERIDONE MALEATE [Suspect]
     Active Substance: DOMPERIDONE MALEATE
     Route: 065
  84. DOMPERIDONE MALEATE [Suspect]
     Active Substance: DOMPERIDONE MALEATE
     Route: 065
  85. DOMPERIDONE MALEATE [Suspect]
     Active Substance: DOMPERIDONE MALEATE
     Route: 065
  86. DOMPERIDONE MALEATE [Suspect]
     Active Substance: DOMPERIDONE MALEATE
     Route: 065
  87. DOMPERIDONE MALEATE [Suspect]
     Active Substance: DOMPERIDONE MALEATE
     Route: 065
  88. MORNIFLUMATE [Suspect]
     Active Substance: MORNIFLUMATE
     Indication: Product used for unknown indication
     Dosage: CAPSULE, SUSTAINED RELEASE
     Route: 065
  89. MORNIFLUMATE [Suspect]
     Active Substance: MORNIFLUMATE
     Dosage: CAPSULE, SUSTAINED RELEASE
     Route: 065
  90. MORNIFLUMATE [Suspect]
     Active Substance: MORNIFLUMATE
     Route: 065
  91. MORNIFLUMATE [Suspect]
     Active Substance: MORNIFLUMATE
     Route: 065
  92. FUROSEMIDE [Suspect]
     Active Substance: FUROSEMIDE
     Indication: Product used for unknown indication
     Route: 065
  93. FUROSEMIDE [Suspect]
     Active Substance: FUROSEMIDE
     Route: 065
  94. FUROSEMIDE [Suspect]
     Active Substance: FUROSEMIDE
     Route: 065
  95. FUROSEMIDE [Suspect]
     Active Substance: FUROSEMIDE
     Route: 065
  96. FUROSEMIDE [Suspect]
     Active Substance: FUROSEMIDE
     Route: 065
  97. FUROSEMIDE [Suspect]
     Active Substance: FUROSEMIDE
     Route: 065
  98. FUROSEMIDE [Suspect]
     Active Substance: FUROSEMIDE
     Route: 065
  99. GLUCAGON [Suspect]
     Active Substance: GLUCAGON
     Indication: Product used for unknown indication
     Route: 065
  100. GLUCAGON [Suspect]
     Active Substance: GLUCAGON
     Dosage: KIT
     Route: 065
  101. IMURAN [Suspect]
     Active Substance: AZATHIOPRINE
     Indication: Product used for unknown indication
     Route: 065
  102. INSULIN GLARGINE [Suspect]
     Active Substance: INSULIN GLARGINE
     Indication: Product used for unknown indication
     Dosage: SOLUTION SUBCUTANEOUS
     Route: 058
  103. INSULIN GLARGINE [Suspect]
     Active Substance: INSULIN GLARGINE
     Route: 065
  104. INSULIN GLARGINE [Suspect]
     Active Substance: INSULIN GLARGINE
     Route: 058
  105. INSULIN GLARGINE [Suspect]
     Active Substance: INSULIN GLARGINE
     Dosage: SOLUTION SUBCUTANEOUS
     Route: 058
  106. INSULIN GLARGINE [Suspect]
     Active Substance: INSULIN GLARGINE
     Route: 058
  107. INSULIN GLARGINE [Suspect]
     Active Substance: INSULIN GLARGINE
     Route: 058
  108. INSULIN GLARGINE [Suspect]
     Active Substance: INSULIN GLARGINE
     Route: 065
  109. LASIX [Suspect]
     Active Substance: FUROSEMIDE
     Indication: Product used for unknown indication
     Route: 065
  110. LEVOFLOXACIN [Suspect]
     Active Substance: LEVOFLOXACIN
     Indication: Product used for unknown indication
     Route: 065
  111. LEVOFLOXACIN [Suspect]
     Active Substance: LEVOFLOXACIN
     Route: 065
  112. LEVOFLOXACIN [Suspect]
     Active Substance: LEVOFLOXACIN
     Route: 065
  113. LEVOFLOXACIN [Suspect]
     Active Substance: LEVOFLOXACIN
     Route: 065
  114. LEVOFLOXACIN [Suspect]
     Active Substance: LEVOFLOXACIN
     Route: 065
  115. LEVOFLOXACIN [Suspect]
     Active Substance: LEVOFLOXACIN
     Route: 065
  116. LEVOFLOXACIN [Suspect]
     Active Substance: LEVOFLOXACIN
     Route: 065
  117. LEVOFLOXACIN [Suspect]
     Active Substance: LEVOFLOXACIN
     Route: 065
  118. LEVOFLOXACIN [Suspect]
     Active Substance: LEVOFLOXACIN
     Route: 065
  119. MAGNESIUM OXIDE [Suspect]
     Active Substance: MAGNESIUM OXIDE
     Indication: Product used for unknown indication
     Route: 065
  120. MAGNESIUM OXIDE [Suspect]
     Active Substance: MAGNESIUM OXIDE
     Route: 065
  121. MAGNESIUM OXIDE [Suspect]
     Active Substance: MAGNESIUM OXIDE
     Route: 065
  122. MAGNESIUM OXIDE [Suspect]
     Active Substance: MAGNESIUM OXIDE
     Route: 065
  123. MAGNESIUM OXIDE [Suspect]
     Active Substance: MAGNESIUM OXIDE
     Route: 065
  124. MAGNESIUM OXIDE [Suspect]
     Active Substance: MAGNESIUM OXIDE
     Route: 065
  125. MAGNESIUM OXIDE [Suspect]
     Active Substance: MAGNESIUM OXIDE
     Route: 065
  126. MAGNESIUM OXIDE [Suspect]
     Active Substance: MAGNESIUM OXIDE
     Route: 065
  127. MAGNESIUM OXIDE [Suspect]
     Active Substance: MAGNESIUM OXIDE
     Route: 065
  128. MAGNESIUM OXIDE [Suspect]
     Active Substance: MAGNESIUM OXIDE
     Route: 065
  129. MAGNESIUM OXIDE [Suspect]
     Active Substance: MAGNESIUM OXIDE
     Route: 065
  130. MAGNESIUM OXIDE [Suspect]
     Active Substance: MAGNESIUM OXIDE
     Route: 065
  131. PANTOPRAZOLE [Suspect]
     Active Substance: PANTOPRAZOLE
     Indication: Product used for unknown indication
     Route: 065
  132. PANTOPRAZOLE [Suspect]
     Active Substance: PANTOPRAZOLE
     Route: 065
  133. PANTOPRAZOLE [Suspect]
     Active Substance: PANTOPRAZOLE
     Route: 065
  134. PANTOPRAZOLE [Suspect]
     Active Substance: PANTOPRAZOLE
     Route: 065
  135. PANTOPRAZOLE [Suspect]
     Active Substance: PANTOPRAZOLE
     Route: 065
  136. PANTOPRAZOLE [Suspect]
     Active Substance: PANTOPRAZOLE
     Route: 065
  137. PANTOPRAZOLE [Suspect]
     Active Substance: PANTOPRAZOLE
     Route: 065
  138. PANTOPRAZOLE [Suspect]
     Active Substance: PANTOPRAZOLE
     Route: 065
  139. PANTOPRAZOLE [Suspect]
     Active Substance: PANTOPRAZOLE
     Route: 065
  140. PREDNISONE [Suspect]
     Active Substance: PREDNISONE
     Indication: Product used for unknown indication
     Route: 065
  141. PREDNISONE [Suspect]
     Active Substance: PREDNISONE
     Indication: Asthma
     Route: 065
  142. PREDNISONE [Suspect]
     Active Substance: PREDNISONE
     Route: 065
  143. PREDNISONE [Suspect]
     Active Substance: PREDNISONE
     Route: 065
  144. PREDNISONE [Suspect]
     Active Substance: PREDNISONE
     Route: 065
  145. SENNOSIDES [Suspect]
     Active Substance: SENNOSIDES
     Indication: Product used for unknown indication
     Route: 065
  146. SENNOSIDES [Suspect]
     Active Substance: SENNOSIDES
     Route: 065
  147. SENNOSIDES [Suspect]
     Active Substance: SENNOSIDES
     Route: 065
  148. SENNOSIDES [Suspect]
     Active Substance: SENNOSIDES
     Route: 065
  149. SEPTRA [Suspect]
     Active Substance: SULFAMETHOXAZOLE\TRIMETHOPRIM
     Indication: Prophylaxis
     Dosage: 3 EVERY 1 WEEKS
     Route: 065
  150. SEPTRA [Suspect]
     Active Substance: SULFAMETHOXAZOLE\TRIMETHOPRIM
     Route: 065
  151. SEPTRA [Suspect]
     Active Substance: SULFAMETHOXAZOLE\TRIMETHOPRIM
     Route: 065
  152. SEPTRA [Suspect]
     Active Substance: SULFAMETHOXAZOLE\TRIMETHOPRIM
     Route: 065
  153. SEPTRA [Suspect]
     Active Substance: SULFAMETHOXAZOLE\TRIMETHOPRIM
     Dosage: SEPTRA INJECTION
     Route: 042
  154. TAMSULOSIN [Suspect]
     Active Substance: TAMSULOSIN
     Indication: Product used for unknown indication
     Route: 065
  155. TAMSULOSIN [Suspect]
     Active Substance: TAMSULOSIN
     Route: 065
  156. TAMSULOSIN [Suspect]
     Active Substance: TAMSULOSIN
     Route: 065
  157. TAMSULOSIN [Suspect]
     Active Substance: TAMSULOSIN
     Route: 065
  158. TAMSULOSIN [Suspect]
     Active Substance: TAMSULOSIN
     Route: 065
  159. PANTOPRAZOLE MAGNESIUM [Suspect]
     Active Substance: PANTOPRAZOLE MAGNESIUM
     Indication: Product used for unknown indication
     Route: 065
  160. PANTOPRAZOLE MAGNESIUM [Suspect]
     Active Substance: PANTOPRAZOLE MAGNESIUM
     Route: 065
  161. PANTOPRAZOLE MAGNESIUM [Suspect]
     Active Substance: PANTOPRAZOLE MAGNESIUM
     Route: 065
  162. PANTOPRAZOLE MAGNESIUM [Suspect]
     Active Substance: PANTOPRAZOLE MAGNESIUM
     Route: 065
  163. PANTOPRAZOLE MAGNESIUM [Suspect]
     Active Substance: PANTOPRAZOLE MAGNESIUM
     Route: 065
  164. PANTOPRAZOLE MAGNESIUM [Suspect]
     Active Substance: PANTOPRAZOLE MAGNESIUM
     Route: 065
  165. PANTOPRAZOLE MAGNESIUM [Suspect]
     Active Substance: PANTOPRAZOLE MAGNESIUM
     Route: 065
  166. PANTOPRAZOLE MAGNESIUM [Suspect]
     Active Substance: PANTOPRAZOLE MAGNESIUM
     Route: 065
  167. PANTOPRAZOLE MAGNESIUM [Suspect]
     Active Substance: PANTOPRAZOLE MAGNESIUM
     Route: 065
  168. PANTOPRAZOLE MAGNESIUM [Suspect]
     Active Substance: PANTOPRAZOLE MAGNESIUM
     Route: 065
  169. PANTOPRAZOLE MAGNESIUM [Suspect]
     Active Substance: PANTOPRAZOLE MAGNESIUM
     Dosage: TABLET (ENTERICCOATED)
     Route: 065
  170. TRELEGY ELLIPTA [Suspect]
     Active Substance: FLUTICASONE FUROATE\UMECLIDINIUM BROMIDE\VILANTEROL TRIFENATATE
     Indication: Product used for unknown indication
     Route: 065
  171. TRELEGY ELLIPTA [Suspect]
     Active Substance: FLUTICASONE FUROATE\UMECLIDINIUM BROMIDE\VILANTEROL TRIFENATATE
     Route: 065
  172. TRELEGY ELLIPTA [Suspect]
     Active Substance: FLUTICASONE FUROATE\UMECLIDINIUM BROMIDE\VILANTEROL TRIFENATATE
     Route: 065
  173. TRELEGY ELLIPTA [Suspect]
     Active Substance: FLUTICASONE FUROATE\UMECLIDINIUM BROMIDE\VILANTEROL TRIFENATATE
     Route: 065
  174. UMECLIDINIUM BROMIDE\VILANTEROL TRIFENATATE [Suspect]
     Active Substance: UMECLIDINIUM BROMIDE\VILANTEROL TRIFENATATE
     Indication: Product used for unknown indication
     Route: 065
  175. UMECLIDINIUM BROMIDE\VILANTEROL TRIFENATATE [Suspect]
     Active Substance: UMECLIDINIUM BROMIDE\VILANTEROL TRIFENATATE
     Route: 065
  176. UMECLIDINIUM BROMIDE\VILANTEROL TRIFENATATE [Suspect]
     Active Substance: UMECLIDINIUM BROMIDE\VILANTEROL TRIFENATATE
     Route: 065
  177. UMECLIDINIUM BROMIDE\VILANTEROL TRIFENATATE [Suspect]
     Active Substance: UMECLIDINIUM BROMIDE\VILANTEROL TRIFENATATE
     Route: 065
  178. VITAMIN D NOS [Suspect]
     Active Substance: VITAMIN D NOS
     Indication: Product used for unknown indication
     Dosage: VITAMIN D
     Route: 065
  179. VITAMIN D NOS [Suspect]
     Active Substance: VITAMIN D NOS
     Dosage: VITAMIN D
     Route: 065
  180. BETAMETHASONE DIPROPIONATE\CLOTRIMAZOLE [Suspect]
     Active Substance: BETAMETHASONE DIPROPIONATE\CLOTRIMAZOLE
     Indication: Product used for unknown indication
     Dosage: BETAMETHASONE DIPROPIONATE/CLOTRIMAZOLE
     Route: 065
  181. CLOTRIMAZOLE [Suspect]
     Active Substance: CLOTRIMAZOLE
     Indication: Product used for unknown indication
     Route: 065
  182. CLOTRIMAZOLE [Suspect]
     Active Substance: CLOTRIMAZOLE
     Route: 065
  183. GLUCAGON HYDROCHLORIDE [Suspect]
     Active Substance: GLUCAGON HYDROCHLORIDE
     Indication: Product used for unknown indication
     Route: 065
  184. UMECLIDINIUM BROMIDE [Suspect]
     Active Substance: UMECLIDINIUM BROMIDE
     Indication: Product used for unknown indication
     Route: 065
  185. UMECLIDINIUM BROMIDE [Suspect]
     Active Substance: UMECLIDINIUM BROMIDE
     Route: 065
  186. AZITHROMYCIN DIHYDRATE [Suspect]
     Active Substance: AZITHROMYCIN DIHYDRATE
     Indication: Product used for unknown indication
     Route: 065
  187. AZITHROMYCIN DIHYDRATE [Suspect]
     Active Substance: AZITHROMYCIN DIHYDRATE
     Route: 065
  188. AZITHROMYCIN DIHYDRATE [Suspect]
     Active Substance: AZITHROMYCIN DIHYDRATE
     Route: 065
  189. CEFUROXIME AXETIL [Suspect]
     Active Substance: CEFUROXIME AXETIL
     Indication: Product used for unknown indication
     Route: 065
  190. CEFUROXIME AXETIL [Suspect]
     Active Substance: CEFUROXIME AXETIL
     Route: 065
  191. CEFUROXIME AXETIL [Suspect]
     Active Substance: CEFUROXIME AXETIL
     Route: 065
  192. CEFUROXIME AXETIL [Suspect]
     Active Substance: CEFUROXIME AXETIL
     Route: 065
  193. CEFUROXIME AXETIL [Suspect]
     Active Substance: CEFUROXIME AXETIL
     Route: 065
  194. CEFUROXIME AXETIL [Suspect]
     Active Substance: CEFUROXIME AXETIL
     Route: 065
  195. CEFUROXIME AXETIL [Suspect]
     Active Substance: CEFUROXIME AXETIL
     Route: 065
  196. CEFUROXIME AXETIL [Suspect]
     Active Substance: CEFUROXIME AXETIL
     Route: 065
  197. CEFUROXIME AXETIL [Suspect]
     Active Substance: CEFUROXIME AXETIL
     Route: 065
  198. CEFUROXIME AXETIL [Suspect]
     Active Substance: CEFUROXIME AXETIL
     Route: 065
  199. CEFUROXIME AXETIL [Suspect]
     Active Substance: CEFUROXIME AXETIL
     Route: 065
  200. CEFUROXIME AXETIL [Suspect]
     Active Substance: CEFUROXIME AXETIL
     Route: 065
  201. CEFUROXIME AXETIL [Suspect]
     Active Substance: CEFUROXIME AXETIL
     Route: 065
  202. CEFUROXIME AXETIL [Suspect]
     Active Substance: CEFUROXIME AXETIL
     Route: 065
  203. CEFUROXIME AXETIL [Suspect]
     Active Substance: CEFUROXIME AXETIL
     Route: 065
  204. CEFUROXIME AXETIL [Suspect]
     Active Substance: CEFUROXIME AXETIL
     Route: 065
  205. CEFUROXIME AXETIL [Suspect]
     Active Substance: CEFUROXIME AXETIL
     Route: 065
  206. CEFUROXIME AXETIL [Suspect]
     Active Substance: CEFUROXIME AXETIL
     Route: 065
  207. CEPHALEXIN [Suspect]
     Active Substance: CEPHALEXIN
     Indication: Product used for unknown indication
     Route: 065
  208. INSULIN ASPART [Suspect]
     Active Substance: INSULIN ASPART
     Indication: Product used for unknown indication
     Route: 065
  209. INSULIN ASPART [Suspect]
     Active Substance: INSULIN ASPART
     Route: 065
  210. PANTOPRAZOLE SODIUM [Suspect]
     Active Substance: PANTOPRAZOLE SODIUM
     Indication: Product used for unknown indication
     Route: 065
  211. LEVOFLOXACIN [Suspect]
     Active Substance: LEVOFLOXACIN
     Indication: Product used for unknown indication
     Route: 065
  212. LEVOFLOXACIN [Suspect]
     Active Substance: LEVOFLOXACIN
     Route: 065
  213. TAMSULOSIN HYDROCHLORIDE [Suspect]
     Active Substance: TAMSULOSIN HYDROCHLORIDE
     Indication: Product used for unknown indication
     Route: 065
  214. TAMSULOSIN HYDROCHLORIDE [Suspect]
     Active Substance: TAMSULOSIN HYDROCHLORIDE
     Route: 065
  215. TAMSULOSIN HYDROCHLORIDE [Suspect]
     Active Substance: TAMSULOSIN HYDROCHLORIDE
     Route: 065
  216. TAMSULOSIN HYDROCHLORIDE [Suspect]
     Active Substance: TAMSULOSIN HYDROCHLORIDE
     Route: 065
  217. TAMSULOSIN HYDROCHLORIDE [Suspect]
     Active Substance: TAMSULOSIN HYDROCHLORIDE
     Route: 065
  218. TAMSULOSIN HYDROCHLORIDE [Suspect]
     Active Substance: TAMSULOSIN HYDROCHLORIDE
     Route: 065
  219. TAMSULOSIN HYDROCHLORIDE [Suspect]
     Active Substance: TAMSULOSIN HYDROCHLORIDE
     Route: 065
  220. TAMSULOSIN HYDROCHLORIDE [Suspect]
     Active Substance: TAMSULOSIN HYDROCHLORIDE
     Route: 065
  221. TAMSULOSIN HYDROCHLORIDE [Suspect]
     Active Substance: TAMSULOSIN HYDROCHLORIDE
     Route: 065
  222. TAMSULOSIN HYDROCHLORIDE [Suspect]
     Active Substance: TAMSULOSIN HYDROCHLORIDE
     Route: 065
  223. AZATHIOPRINE SODIUM [Suspect]
     Active Substance: AZATHIOPRINE SODIUM
     Indication: Product used for unknown indication
     Route: 065
  224. AZATHIOPRINE SODIUM [Suspect]
     Active Substance: AZATHIOPRINE SODIUM
     Route: 065
  225. AZATHIOPRINE SODIUM [Suspect]
     Active Substance: AZATHIOPRINE SODIUM
     Route: 065
  226. AZATHIOPRINE SODIUM [Suspect]
     Active Substance: AZATHIOPRINE SODIUM
     Route: 065
  227. AZATHIOPRINE SODIUM [Suspect]
     Active Substance: AZATHIOPRINE SODIUM
     Route: 048
  228. AZATHIOPRINE SODIUM [Suspect]
     Active Substance: AZATHIOPRINE SODIUM
     Route: 065
  229. AZATHIOPRINE SODIUM [Suspect]
     Active Substance: AZATHIOPRINE SODIUM
     Route: 065
  230. SULFATRIM [Suspect]
     Active Substance: SULFAMETHOXAZOLE\TRIMETHOPRIM
     Indication: Product used for unknown indication
     Route: 065
  231. MORNIFLUMATE [Suspect]
     Active Substance: MORNIFLUMATE
     Indication: Product used for unknown indication
     Route: 065
  232. PANTOPRAZOLE MAGNESIUM [Suspect]
     Active Substance: PANTOPRAZOLE MAGNESIUM
     Indication: Product used for unknown indication
     Route: 065
  233. SULFAMETHOXAZOLE\TRIMETHOPRIM [Suspect]
     Active Substance: SULFAMETHOXAZOLE\TRIMETHOPRIM
     Indication: Prophylaxis
     Dosage: SULFAMETHOXAZOLE/TRIMETHOPRIM
     Route: 065
  234. SULFAMETHOXAZOLE\TRIMETHOPRIM [Suspect]
     Active Substance: SULFAMETHOXAZOLE\TRIMETHOPRIM
     Dosage: 3 EVERY 1 WEEKS
     Route: 065
  235. CANDESARTAN CILEXETIL [Suspect]
     Active Substance: CANDESARTAN CILEXETIL
     Indication: Product used for unknown indication
     Route: 065
  236. CANDESARTAN CILEXETIL [Suspect]
     Active Substance: CANDESARTAN CILEXETIL
     Route: 048
  237. CANDESARTAN CILEXETIL [Suspect]
     Active Substance: CANDESARTAN CILEXETIL
     Route: 065
  238. CANDESARTAN CILEXETIL [Suspect]
     Active Substance: CANDESARTAN CILEXETIL
     Route: 048
  239. SENNOSIDES A AND B [Suspect]
     Active Substance: SENNOSIDES A AND B
     Indication: Product used for unknown indication
     Dosage: CALCIUM SENNOSIDES A + B
     Route: 065
  240. ERGOCALCIFEROL [Suspect]
     Active Substance: ERGOCALCIFEROL
     Indication: Product used for unknown indication
     Route: 065
  241. SULFADIAZINE\TRIMETHOPRIM [Suspect]
     Active Substance: SULFADIAZINE\TRIMETHOPRIM
     Indication: Product used for unknown indication
     Dosage: SULFADIAZINE/TRIMETHOPRIM
     Route: 065
  242. BETA GLUCAN [Suspect]
     Active Substance: BETA GLUCAN
     Indication: Product used for unknown indication
     Route: 065
  243. CANDESARTAN CILEXETIL\HYDROCHLOROTHIAZIDE [Suspect]
     Active Substance: CANDESARTAN CILEXETIL\HYDROCHLOROTHIAZIDE
     Indication: Product used for unknown indication
     Route: 048
  244. CANDESARTAN CILEXETIL\HYDROCHLOROTHIAZIDE [Suspect]
     Active Substance: CANDESARTAN CILEXETIL\HYDROCHLOROTHIAZIDE
     Route: 065
  245. CANDESARTAN CILEXETIL\HYDROCHLOROTHIAZIDE [Suspect]
     Active Substance: CANDESARTAN CILEXETIL\HYDROCHLOROTHIAZIDE
     Route: 048
  246. LEVOFLOXACIN HEMIHYDRATE [Suspect]
     Active Substance: LEVOFLOXACIN
     Indication: Product used for unknown indication
     Route: 065
  247. LEVOFLOXACIN HEMIHYDRATE [Suspect]
     Active Substance: LEVOFLOXACIN
     Route: 065
  248. LEVOFLOXACIN HEMIHYDRATE [Suspect]
     Active Substance: LEVOFLOXACIN
     Route: 065
  249. LEVOFLOXACIN HEMIHYDRATE [Suspect]
     Active Substance: LEVOFLOXACIN
     Route: 065
  250. PANTOPRAZOLE SODIUM [Suspect]
     Active Substance: PANTOPRAZOLE SODIUM
     Indication: Product used for unknown indication
     Route: 065
  251. PANTOPRAZOLE SODIUM [Suspect]
     Active Substance: PANTOPRAZOLE SODIUM
     Route: 065
  252. PANTOPRAZOLE SODIUM [Suspect]
     Active Substance: PANTOPRAZOLE SODIUM
     Route: 065
  253. PANTOPRAZOLE SODIUM [Suspect]
     Active Substance: PANTOPRAZOLE SODIUM
     Route: 065
  254. PANTOPRAZOLE SODIUM [Suspect]
     Active Substance: PANTOPRAZOLE SODIUM
     Route: 065
  255. SENNA LEAF [Suspect]
     Active Substance: SENNA LEAF
     Indication: Product used for unknown indication
     Route: 065
  256. FLUTICASONE FUROATE\VILANTEROL TRIFENATATE [Suspect]
     Active Substance: FLUTICASONE FUROATE\VILANTEROL TRIFENATATE
     Indication: Product used for unknown indication
     Route: 065
  257. HYDROCHLOROTHIAZIDE [Suspect]
     Active Substance: HYDROCHLOROTHIAZIDE
     Indication: Product used for unknown indication
     Route: 065
  258. LEVOTHYROXINE SODIUM [Suspect]
     Active Substance: LEVOTHYROXINE SODIUM
     Indication: Product used for unknown indication
     Route: 065
  259. LIRAGLUTIDE [Suspect]
     Active Substance: LIRAGLUTIDE
     Indication: Product used for unknown indication
     Route: 065
  260. MONTELUKAST SODIUM [Suspect]
     Active Substance: MONTELUKAST SODIUM
     Indication: Product used for unknown indication
     Route: 065
  261. NUCALA [Suspect]
     Active Substance: MEPOLIZUMAB
     Indication: Product used for unknown indication
     Route: 065
  262. RUPATADINE [Suspect]
     Active Substance: RUPATADINE
     Indication: Product used for unknown indication
     Route: 065
  263. SERTRALINE HYDROCHLORIDE [Suspect]
     Active Substance: SERTRALINE HYDROCHLORIDE
     Indication: Product used for unknown indication
     Route: 065
  264. SPIRIVA [Suspect]
     Active Substance: TIOTROPIUM BROMIDE MONOHYDRATE
     Indication: Product used for unknown indication
     Route: 065
  265. VILANTEROL TRIFENATATE [Suspect]
     Active Substance: VILANTEROL TRIFENATATE
     Indication: Product used for unknown indication
     Route: 065
  266. BUDESONIDE\FORMOTEROL FUMARATE [Suspect]
     Active Substance: BUDESONIDE\FORMOTEROL FUMARATE
     Indication: Product used for unknown indication
     Route: 065
  267. BETAMETHASONE\CLOTRIMAZOLE [Suspect]
     Active Substance: BETAMETHASONE\CLOTRIMAZOLE
     Indication: Product used for unknown indication
     Route: 065
  268. BETAMETHASONE [Suspect]
     Active Substance: BETAMETHASONE
     Indication: Product used for unknown indication
     Route: 065
  269. CEFUROXIME SODIUM [Suspect]
     Active Substance: CEFUROXIME SODIUM
     Indication: Product used for unknown indication
     Route: 065
  270. VITAMIN D3 [Suspect]
     Active Substance: CHOLECALCIFEROL
     Indication: Product used for unknown indication
     Route: 065
  271. SULFATRIM [Concomitant]
     Active Substance: SULFAMETHOXAZOLE\TRIMETHOPRIM
     Indication: Product used for unknown indication
  272. PENICILLIN V POTASSIUM [Concomitant]
     Active Substance: PENICILLIN V POTASSIUM
     Indication: Product used for unknown indication
  273. SULFADIAZINE\TRIMETHOPRIM [Concomitant]
     Active Substance: SULFADIAZINE\TRIMETHOPRIM
     Indication: Product used for unknown indication

REACTIONS (21)
  - Asthma [Unknown]
  - Condition aggravated [Unknown]
  - Dyspnoea [Unknown]
  - Haemoptysis [Unknown]
  - Loss of personal independence in daily activities [Unknown]
  - Neuritis [Unknown]
  - Neurological symptom [Unknown]
  - Obstructive airways disorder [Unknown]
  - Pulmonary alveolar haemorrhage [Unknown]
  - Pulmonary fibrosis [Unknown]
  - Pulmonary vasculitis [Unknown]
  - Sleep disorder due to a general medical condition [Unknown]
  - Vasculitis [Unknown]
  - Pain in extremity [Unknown]
  - Lung disorder [Unknown]
  - Wheezing [Unknown]
  - Respiratory symptom [Unknown]
  - Anxiety [Unknown]
  - Full blood count abnormal [Unknown]
  - Hypothyroidism [Unknown]
  - Therapeutic product effect incomplete [Unknown]
